FAERS Safety Report 8828734 (Version 2)
Quarter: 2015Q2

REPORT INFORMATION
  Report Type: Report from Study
  Country: US (occurrence: US)
  Receive Date: 20121008
  Receipt Date: 20150421
  Transmission Date: 20150821
  Serious: Yes (Death, Hospitalization)
  Sender: FDA-Public Use
  Company Number: US-ROCHE-1133019

PATIENT
  Age: 65 Year
  Sex: Male

DRUGS (20)
  1. RITUXAN [Suspect]
     Active Substance: RITUXIMAB
     Route: 042
  2. DECADRON [Concomitant]
     Active Substance: DEXAMETHASONE
     Route: 042
  3. LYRICA [Concomitant]
     Active Substance: PREGABALIN
     Indication: PAIN
     Route: 065
  4. CEFTAZIDIME. [Concomitant]
     Active Substance: CEFTAZIDIME
  5. CARDIZEM [Concomitant]
     Active Substance: DILTIAZEM HYDROCHLORIDE
  6. DIGOXIN. [Concomitant]
     Active Substance: DIGOXIN
  7. RITUXAN [Suspect]
     Active Substance: RITUXIMAB
     Indication: OFF LABEL USE
     Route: 042
  8. SENNA [Concomitant]
     Active Substance: SENNA LEAF\SENNOSIDES\SENNOSIDES A AND B
  9. BENADRYL [Concomitant]
     Active Substance: DIPHENHYDRAMINE HYDROCHLORIDE
     Route: 042
  10. ALBUTEROL. [Concomitant]
     Active Substance: ALBUTEROL
  11. RITUXAN [Suspect]
     Active Substance: RITUXIMAB
     Route: 042
  12. OXYCONTIN [Concomitant]
     Active Substance: OXYCODONE HYDROCHLORIDE
     Route: 065
  13. ALLOPURINOL. [Concomitant]
     Active Substance: ALLOPURINOL
     Route: 065
  14. LACTOBACILLUS [Concomitant]
     Active Substance: LACTOBACILLUS ACIDOPHILUS
  15. PROTONIX (UNITED STATES) [Concomitant]
  16. RITUXAN [Suspect]
     Active Substance: RITUXIMAB
     Indication: LYMPHOMA
     Route: 042
  17. PREDNISONE. [Concomitant]
     Active Substance: PREDNISONE
     Route: 065
  18. OXYCONTIN [Concomitant]
     Active Substance: OXYCODONE HYDROCHLORIDE
     Indication: PAIN
     Route: 065
  19. NYSTATIN. [Concomitant]
     Active Substance: NYSTATIN
  20. VANCOMYCIN [Concomitant]
     Active Substance: VANCOMYCIN

REACTIONS (23)
  - Confusional state [Unknown]
  - Tremor [Unknown]
  - Therapeutic response decreased [Unknown]
  - Seizure [Unknown]
  - Pneumonia [Unknown]
  - Death [Fatal]
  - Hypertension [Unknown]
  - Dry mouth [Unknown]
  - Ecchymosis [Unknown]
  - Pain in extremity [Unknown]
  - Contusion [Unknown]
  - Myalgia [Unknown]
  - Peripheral swelling [Unknown]
  - Chills [Unknown]
  - Pruritus [Unknown]
  - Hypokalaemia [Unknown]
  - Hypoplastic anaemia [Unknown]
  - Dysarthria [Unknown]
  - Hyponatraemia [Unknown]
  - Thrombocytopenia [Unknown]
  - Malaise [Unknown]
  - Pyrexia [Unknown]
  - Vascular pain [Unknown]

NARRATIVE: CASE EVENT DATE: 20100406
